FAERS Safety Report 6192749-8 (Version None)
Quarter: 2009Q2

REPORT INFORMATION
  Report Type: 
  Country: None (occurrence: None)
  Receive Date: 20090518
  Receipt Date: 20090507
  Transmission Date: 20091009
  Serious: Yes (Other)
  Sender: FDA-Public Use
  Company Number: CN-ASTRAZENECA-2009AP02964

PATIENT
  Age: 58 Year
  Weight: 63 kg

DRUGS (4)
  1. LIDOCAINE [Suspect]
     Indication: ANAESTHESIA
     Route: 042
  2. LIDOCAINE [Suspect]
     Route: 042
  3. LIDOCAINE [Suspect]
     Dosage: ADDED TO GRADUALLY TOA TOTAL DOSE OF 20 ML
     Route: 042
  4. LIDOCAINE [Suspect]
     Dosage: FURTHER OPERATIONAL DOSE ADMINISTERED (DOSE NOT SPECIFIED)
     Route: 042

REACTIONS (6)
  - APATHY [None]
  - DRUG TOXICITY [None]
  - DYSARTHRIA [None]
  - HEART RATE INCREASED [None]
  - MUSCLE RIGIDITY [None]
  - MUSCLE TWITCHING [None]
